FAERS Safety Report 7395853-1 (Version None)
Quarter: 2011Q2

REPORT INFORMATION
  Report Type: 
  Country: None (occurrence: None)
  Receive Date: 20110405
  Receipt Date: 20110309
  Transmission Date: 20111010
  Serious: No
  Sender: FDA-Public Use
  Company Number: US-BAYER-2011-022838

PATIENT
  Sex: Male
  Weight: 129 kg

DRUGS (6)
  1. IBUPROFEN [Concomitant]
     Dosage: 600 MG, TID
     Route: 048
  2. CHOLESTEROL- AND TRIGLYCERIDE REDUCERS [Concomitant]
  3. PERCOCET [Concomitant]
     Dosage: UNK
     Route: 048
  4. DRUG USED IN DIABETES [Concomitant]
  5. LANTUS [Concomitant]
  6. ALEVE (CAPLET) [Suspect]
     Indication: ANALGESIC THERAPY
     Dosage: 440 MG, QD, BOTTLE COUNT 50S
     Route: 048
     Dates: start: 20110308, end: 20110309

REACTIONS (1)
  - PAIN [None]
